FAERS Safety Report 12461305 (Version 1)
Quarter: 2016Q2

REPORT INFORMATION
  Report Type: Spontaneous
  Country: US (occurrence: US)
  Receive Date: 20160613
  Receipt Date: 20160613
  Transmission Date: 20160815
  Serious: No
  Sender: FDA-Public Use
  Company Number: US-US WORLDMEDS, LLC-USW201507-000190

PATIENT
  Age: 78 Year
  Sex: Female
  Weight: 77.56 kg

DRUGS (3)
  1. NEUPRO [Concomitant]
     Active Substance: ROTIGOTINE
     Indication: PARKINSON^S DISEASE
  2. APOKYN [Suspect]
     Active Substance: APOMORPHINE HYDROCHLORIDE
     Indication: PARKINSON^S DISEASE
     Dates: start: 201504
  3. STALEVO [Concomitant]
     Active Substance: CARBIDOPA\ENTACAPONE\LEVODOPA
     Indication: PARKINSON^S DISEASE

REACTIONS (4)
  - Drug ineffective [Unknown]
  - Peripheral coldness [Unknown]
  - Skin discolouration [Unknown]
  - Weight decreased [Unknown]

NARRATIVE: CASE EVENT DATE: 201505
